FAERS Safety Report 15208684 (Version 1)
Quarter: 2018Q4

REPORT INFORMATION
  Report Type: Spontaneous
  Country: US (occurrence: US)
  Receive Date: 20180727
  Receipt Date: 20180727
  Transmission Date: 20190204
  Serious: No
  Sender: FDA-Public Use
  Company Number: US-HIKMA PHARMACEUTICALS USA INC.-US-H14001-17-03212

PATIENT
  Sex: Female

DRUGS (2)
  1. LORAZEPAM INTENSOL [Suspect]
     Active Substance: LORAZEPAM
     Indication: SLEEP DISORDER
  2. LORAZEPAM INTENSOL [Suspect]
     Active Substance: LORAZEPAM
     Indication: ANXIETY
     Route: 065

REACTIONS (3)
  - Chronic obstructive pulmonary disease [Unknown]
  - Product storage error [Unknown]
  - Disability [Unknown]
